FAERS Safety Report 10466481 (Version 4)
Quarter: 2014Q4

REPORT INFORMATION
  Report Type: Report from Study
  Country: US (occurrence: US)
  Receive Date: 20140922
  Receipt Date: 20141022
  Transmission Date: 20150528
  Serious: Yes (Hospitalization, Other)
  Sender: FDA-Public Use
  Company Number: PHEH2014US016649

PATIENT
  Age: 33 Year
  Sex: Male

DRUGS (1)
  1. GILENYA [Suspect]
     Active Substance: FINGOLIMOD HYDROCHLORIDE
     Indication: MULTIPLE SCLEROSIS
     Dosage: 0.5 MG, QD
     Route: 048
     Dates: start: 20140313

REACTIONS (11)
  - Multiple sclerosis relapse [Recovering/Resolving]
  - Hypoaesthesia [Recovering/Resolving]
  - Hemiparesis [Recovering/Resolving]
  - Lyme disease [Unknown]
  - Myelitis transverse [Unknown]
  - Muscle spasms [Not Recovered/Not Resolved]
  - Migraine [Not Recovered/Not Resolved]
  - Dehydration [Recovering/Resolving]
  - Eye pain [Unknown]
  - Stress [Unknown]
  - Groin pain [Unknown]

NARRATIVE: CASE EVENT DATE: 20140816
